FAERS Safety Report 17131733 (Version 1)
Quarter: 2019Q4

REPORT INFORMATION
  Report Type: Spontaneous
  Country: CN (occurrence: CN)
  Receive Date: 20191209
  Receipt Date: 20191209
  Transmission Date: 20200122
  Serious: Yes (Hospitalization)
  Sender: FDA-Public Use
  Company Number: CN-BAXTER-2019BAX024700

PATIENT
  Age: 5 Year
  Sex: Male
  Weight: 14.5 kg

DRUGS (12)
  1. TOPOTECAN HYDROCHLORIDE. [Suspect]
     Active Substance: TOPOTECAN HYDROCHLORIDE
     Indication: NEUROBLASTOMA
  2. TOPOTECAN HYDROCHLORIDE. [Suspect]
     Active Substance: TOPOTECAN HYDROCHLORIDE
     Indication: REFRACTORY CANCER
  3. 0.9% SODIUM CHLORIDE INJECTION [Suspect]
     Active Substance: SODIUM CHLORIDE
     Dosage: TOPOTECAN 0.5 MG + 0.9% NS AT AN INFUSION RATE OF 41 ML/H, DAY 1-5
     Route: 041
     Dates: start: 20191113, end: 20191117
  4. ONDANSETRON HYDROCHLORIDE. [Suspect]
     Active Substance: ONDANSETRON HYDROCHLORIDE
     Indication: ANTIEMETIC SUPPORTIVE CARE
     Dosage: ONDANSETRON INJECTION + 0.9% NS 25 ML, 30 MINUTES BEFORE DAILY CHEMOTHERAPY
     Route: 040
     Dates: start: 20191113, end: 20191117
  5. MESNA. [Suspect]
     Active Substance: MESNA
     Indication: PROPHYLAXIS
     Dosage: MESNA INJECTION + 0.9% NS 10 ML, BEFORE AND AFTER CYCLOPHOSPHAMIDE ADMINISTRATION
     Route: 040
     Dates: start: 20191113, end: 20191117
  6. ENDOXAN [Suspect]
     Active Substance: CYCLOPHOSPHAMIDE
     Indication: METASTASIS
     Dosage: ENDOXAN + 0.9% NS 20.1 ML, INFUSION RATE OF 41 ML/H, DAY 1-5
     Route: 041
     Dates: start: 20191113, end: 20191117
  7. ENDOXAN [Suspect]
     Active Substance: CYCLOPHOSPHAMIDE
     Indication: NEUROBLASTOMA
  8. ENDOXAN [Suspect]
     Active Substance: CYCLOPHOSPHAMIDE
     Indication: REFRACTORY CANCER
  9. 0.9% SODIUM CHLORIDE INJECTION [Suspect]
     Active Substance: SODIUM CHLORIDE
     Dosage: ONDANSETRON INJECTION 3.4 MG + 0.9% NS, 30 MINUTES BEFORE DAILY CHEMOTHERAPY
     Route: 040
     Dates: start: 20191113, end: 20191117
  10. TOPOTECAN HYDROCHLORIDE. [Suspect]
     Active Substance: TOPOTECAN HYDROCHLORIDE
     Indication: METASTASIS
     Dosage: TOPOTECAN + 0.9% NS 20.1 ML, INFUSION RATE OF 41 ML/H, DAY 1-5
     Route: 041
     Dates: start: 20191113, end: 20191117
  11. 0.9% SODIUM CHLORIDE INJECTION [Suspect]
     Active Substance: SODIUM CHLORIDE
     Indication: MEDICATION DILUTION
     Dosage: ENDOXAN 83.8 MG + 0.9% NS AT AN INFUSION RATE OF 41 ML/H, DAY 1-5
     Route: 041
     Dates: start: 20191113, end: 20191117
  12. 0.9% SODIUM CHLORIDE INJECTION [Suspect]
     Active Substance: SODIUM CHLORIDE
     Dosage: MESNA INJECTION 100.5 MG + 0.9% NS, BEFORE AND AFTER CYCLOPHOSPHAMIDE ADMINISTRATION
     Route: 040
     Dates: start: 20191113, end: 20191117

REACTIONS (3)
  - Cytopenia [Unknown]
  - Discomfort [Unknown]
  - Pyrexia [Unknown]

NARRATIVE: CASE EVENT DATE: 201911
